FAERS Safety Report 6505421-9 (Version None)
Quarter: 2009Q4

REPORT INFORMATION
  Report Type: 
  Country: None (occurrence: None)
  Receive Date: 20091218
  Receipt Date: 20091208
  Transmission Date: 20100525
  Serious: No
  Sender: FDA-Public Use
  Company Number: US-B.I. PHARMACEUTICALS,INC./RIDGEFIELD-2009-BP-14545BP

PATIENT
  Age: 3 Year

DRUGS (1)
  1. ZANTAC 150 [Suspect]
     Dosage: ACCIDENTALLY TOOK 3 OR 4 TABLETS
     Route: 048

REACTIONS (1)
  - ACCIDENTAL DRUG INTAKE BY CHILD [None]
